FAERS Safety Report 12466082 (Version 1)
Quarter: 2016Q2

REPORT INFORMATION
  Report Type: Spontaneous
  Country: US (occurrence: US)
  Receive Date: 20160614
  Receipt Date: 20160614
  Transmission Date: 20160815
  Serious: No
  Sender: FDA-Public Use
  Company Number: US-ELI_LILLY_AND_COMPANY-US201606003872

PATIENT
  Sex: Female

DRUGS (1)
  1. HUMALOG [Suspect]
     Active Substance: INSULIN LISPRO
     Indication: DIABETES MELLITUS
     Dosage: UNK, OTHER
     Route: 058

REACTIONS (5)
  - Visual impairment [Recovered/Resolved]
  - Blood glucose increased [Unknown]
  - Diabetic retinopathy [Unknown]
  - Drug ineffective [Unknown]
  - Macular oedema [Unknown]
